FAERS Safety Report 5602250-5 (Version None)
Quarter: 2008Q1

REPORT INFORMATION
  Report Type: 
  Country: None (occurrence: None)
  Receive Date: 20080125
  Receipt Date: 20080114
  Transmission Date: 20080703
  Serious: Yes (Other)
  Sender: FDA-Public Use
  Company Number: US-JNJFOC-20080103458

PATIENT
  Sex: Female
  Weight: 95.26 kg

DRUGS (9)
  1. IMODIUM ADVANCED [Suspect]
     Route: 048
  2. IMODIUM ADVANCED [Suspect]
     Indication: DRUG USE FOR UNKNOWN INDICATION
     Route: 048
  3. GLUCOPHAGE [Suspect]
     Indication: DIABETES MELLITUS
     Route: 048
  4. PROVIGIL [Suspect]
     Indication: NARCOLEPSY
     Route: 048
  5. PRAVACHOL [Concomitant]
  6. COQ10 [Concomitant]
  7. AMBIEN [Concomitant]
  8. RITALIN [Concomitant]
  9. LANTUS [Concomitant]

REACTIONS (2)
  - ANAPHYLACTIC REACTION [None]
  - BLOOD GLUCOSE DECREASED [None]
